FAERS Safety Report 12305170 (Version 7)
Quarter: 2017Q4

REPORT INFORMATION
  Report Type: Report from Study
  Country: CA (occurrence: CA)
  Receive Date: 20160426
  Receipt Date: 20171027
  Transmission Date: 20180320
  Serious: Yes (Other)
  Sender: FDA-Public Use
  Company Number: CA-ROCHE-ITM201506IM018264

PATIENT
  Age: 64 Year
  Sex: Female
  Weight: 88 kg

DRUGS (6)
  1. ESBRIET [Suspect]
     Active Substance: PIRFENIDONE
     Route: 048
     Dates: start: 20150616
  2. ESBRIET [Suspect]
     Active Substance: PIRFENIDONE
     Dosage: RE-STARTED AT 1 TABLET TID (AS PER MD NOTES)
     Route: 048
     Dates: start: 201604
  3. ESBRIET [Suspect]
     Active Substance: PIRFENIDONE
     Indication: IDIOPATHIC PULMONARY FIBROSIS
     Dosage: SUSPENDED
     Route: 048
     Dates: start: 20150609, end: 20170916
  4. RABEPRAZOLE [Concomitant]
     Active Substance: RABEPRAZOLE
  5. ESBRIET [Suspect]
     Active Substance: PIRFENIDONE
     Dosage: RE-STARTED AT 1 TABLET TID (AS PER MD NOTES)
     Route: 048
     Dates: start: 20150625, end: 20160224
  6. ROSUVASTATIN. [Concomitant]
     Active Substance: ROSUVASTATIN

REACTIONS (12)
  - Cough [Unknown]
  - Pain [Not Recovered/Not Resolved]
  - Hiatus hernia [Not Recovered/Not Resolved]
  - Pulmonary function test abnormal [Unknown]
  - Decreased appetite [Unknown]
  - Diarrhoea [Unknown]
  - Nausea [Recovering/Resolving]
  - Fatigue [Unknown]
  - Rales [Not Recovered/Not Resolved]
  - Pulmonary function test decreased [Unknown]
  - Iron deficiency anaemia [Unknown]
  - Gastric volvulus [Not Recovered/Not Resolved]

NARRATIVE: CASE EVENT DATE: 20150609
